FAERS Safety Report 14852873 (Version 2)
Quarter: 2018Q2

REPORT INFORMATION
  Report Type: Spontaneous
  Country: US (occurrence: US)
  Receive Date: 20180507
  Receipt Date: 20180511
  Transmission Date: 20180711
  Serious: Yes (Other)
  Sender: FDA-Public Use
  Company Number: US-UNITED THERAPEUTICS-UNT-2018-006075

PATIENT
  Age: 60 Year
  Sex: Female
  Weight: 63.49 kg

DRUGS (1)
  1. REMODULIN [Suspect]
     Active Substance: TREPROSTINIL
     Indication: PULMONARY ARTERIAL HYPERTENSION
     Dosage: 0.035 ?G/KG, CONTINUING
     Route: 058
     Dates: start: 20171027

REACTIONS (6)
  - Infusion site pain [Unknown]
  - Infusion site induration [Unknown]
  - Infusion site erythema [Unknown]
  - Diarrhoea [Unknown]
  - Renal disorder [Unknown]
  - Infusion site infection [Unknown]

NARRATIVE: CASE EVENT DATE: 20180426
